FAERS Safety Report 5496461-X (Version None)
Quarter: 2007Q4

REPORT INFORMATION
  Report Type: 
  Country: None (occurrence: None)
  Receive Date: 20071025
  Receipt Date: 20071015
  Transmission Date: 20080405
  Serious: Yes (Hospitalization)
  Sender: FDA-Public Use
  Company Number: FR-ELI_LILLY_AND_COMPANY-FR200707006091

PATIENT
  Sex: Female

DRUGS (5)
  1. FORTEO [Suspect]
     Indication: OSTEOPOROSIS
     Dosage: 20 UG, DAILY (1/D)
     Route: 058
     Dates: start: 20060405
  2. PREVISCAN [Concomitant]
     Dosage: 0.5 D/F, EACH EVENING
     Route: 048
  3. LASIX [Concomitant]
     Dosage: 20 MG, EACH MORNING
     Route: 048
  4. CACIT D3 [Concomitant]
     Dosage: 2 D/F, EACH MORNING
     Route: 048
  5. INEXIUM [Concomitant]
     Dosage: 20 MG, EACH MORNING
     Route: 048

REACTIONS (5)
  - DYSPNOEA EXERTIONAL [None]
  - HIATUS HERNIA [None]
  - IRON DEFICIENCY [None]
  - MICROCYTIC ANAEMIA [None]
  - OEDEMA PERIPHERAL [None]
